FAERS Safety Report 9191554 (Version 1)
Quarter: 2013Q1

REPORT INFORMATION
  Report Type: Other
  Country: GB (occurrence: GB)
  Receive Date: 20130326
  Receipt Date: 20130326
  Transmission Date: 20140127
  Serious: Yes (Other)
  Sender: FDA-Public Use
  Company Number: GB-WATSON-2013-05025

PATIENT
  Age: 45 Year
  Sex: Female

DRUGS (4)
  1. ACETAMINOPHEN (+) CODEINE [Suspect]
     Indication: OSTEOARTHRITIS
     Dosage: 1 DF, UNK
     Route: 048
  2. ACETAMINOPHEN (+) CODEINE [Suspect]
     Dosage: 1 DF, DAILY
  3. NAPROXEN [Concomitant]
     Indication: PRODUCT USED FOR UNKNOWN INDICATION
     Route: 065
  4. OMEPRAZOL [Concomitant]
     Indication: PRODUCT USED FOR UNKNOWN INDICATION
     Route: 065

REACTIONS (12)
  - Diplopia [Unknown]
  - Lethargy [Unknown]
  - Aphasia [Unknown]
  - Disturbance in attention [Unknown]
  - Thirst [Unknown]
  - Dry mouth [Unknown]
  - Constipation [Unknown]
  - Fatigue [Unknown]
  - Dizziness [Unknown]
  - Malaise [Unknown]
  - Pain [None]
  - Speech disorder [None]
